FAERS Safety Report 6294965-3 (Version None)
Quarter: 2009Q3

REPORT INFORMATION
  Report Type: 
  Country: None (occurrence: None)
  Receive Date: 20090803
  Receipt Date: 20090724
  Transmission Date: 20100115
  Serious: Yes (Hospitalization, Other)
  Sender: FDA-Public Use
  Company Number: FR-ABBOTT-09P-056-0585555-00

PATIENT
  Sex: Male
  Weight: 110 kg

DRUGS (3)
  1. HUMIRA [Suspect]
     Indication: CROHN'S DISEASE
     Route: 058
     Dates: start: 20081014, end: 20090701
  2. HUMIRA [Suspect]
  3. BEFIZAL [Concomitant]
     Indication: HYPERLIPIDAEMIA
     Dates: start: 20070101

REACTIONS (2)
  - ABSCESS INTESTINAL [None]
  - MESENTERIC VEIN THROMBOSIS [None]
